FAERS Safety Report 17773343 (Version 3)
Quarter: 2020Q4

REPORT INFORMATION
  Report Type: Spontaneous
  Country: FR (occurrence: FR)
  Receive Date: 20200512
  Receipt Date: 20201224
  Transmission Date: 20210113
  Serious: Yes (Death, Other)
  Sender: FDA-Public Use
  Company Number: NVSC2020FR128774

PATIENT
  Age: 61 Year
  Sex: Female

DRUGS (3)
  1. DEXAMETHASONE. [Suspect]
     Active Substance: DEXAMETHASONE
     Indication: LICHEN MYXOEDEMATOSUS
     Dosage: 40 MG, DAYS 1-4
     Route: 048
  2. BORTEZOMIB. [Suspect]
     Active Substance: BORTEZOMIB
     Indication: LICHEN MYXOEDEMATOSUS
     Dosage: 1.3 MG/M2, DAYS 8, 15 AND 22)
     Route: 042
  3. MELPHALAN. [Suspect]
     Active Substance: MELPHALAN
     Indication: LICHEN MYXOEDEMATOSUS
     Dosage: 10 MG/M2, DAYS 1-4
     Route: 048

REACTIONS (5)
  - Product use in unapproved indication [Fatal]
  - Therapy non-responder [Fatal]
  - Cardiac failure acute [Fatal]
  - Sepsis [Fatal]
  - Drug ineffective for unapproved indication [Fatal]
